FAERS Safety Report 11374207 (Version 1)
Quarter: 2015Q3

REPORT INFORMATION
  Report Type: Spontaneous
  Country: US (occurrence: None)
  Receive Date: 20150804
  Receipt Date: 20150804
  Transmission Date: 20151125
  Serious: Yes (Other)
  Sender: FDA-Public Use
  Company Number: NL-SEPTODONT-201402217

PATIENT
  Age: 76 Year
  Sex: Female

DRUGS (2)
  1. FOSAMAX [Suspect]
     Active Substance: ALENDRONATE SODIUM
  2. SEPTANEST ARTICAINE HYDROCHLORIDE; EPINEPHRINE BITARTRATE [Suspect]
     Active Substance: ARTICAINE HYDROCHLORIDE\EPINEPHRINE BITARTRATE
     Indication: LOCAL ANAESTHESIA

REACTIONS (4)
  - Jaw disorder [None]
  - Loss of consciousness [None]
  - Dizziness [None]
  - Visual acuity reduced [None]

NARRATIVE: CASE EVENT DATE: 20130403
